FAERS Safety Report 8031457-5 (Version None)
Quarter: 2012Q1

REPORT INFORMATION
  Report Type: 
  Country: None (occurrence: None)
  Receive Date: 20120109
  Receipt Date: 20120103
  Transmission Date: 20120608
  Serious: Yes (Hospitalization)
  Sender: FDA-Public Use
  Company Number: CL-US-EMD SERONO, INC.-7104571

PATIENT
  Sex: Male

DRUGS (1)
  1. SAIZEN [Suspect]
     Indication: FAILURE TO THRIVE
     Route: 058
     Dates: start: 20090313, end: 20110901

REACTIONS (1)
  - PITUITARY TUMOUR [None]
